FAERS Safety Report 6330805-1 (Version None)
Quarter: 2009Q3

REPORT INFORMATION
  Report Type: 
  Country: None (occurrence: None)
  Receive Date: 20090827
  Receipt Date: 20090820
  Transmission Date: 20100115
  Serious: Yes (Hospitalization)
  Sender: FDA-Public Use
  Company Number: PHEH2009US09624

PATIENT
  Sex: Female

DRUGS (6)
  1. AFINITOR [Suspect]
     Dosage: 5MG
     Dates: start: 20090703
  2. VITAMINS NOS [Concomitant]
     Dosage: UNK
  3. FENTANYL [Concomitant]
     Dosage: UNK
  4. NEURONTIN [Concomitant]
     Dosage: UNK
  5. GLUCOPHAGE [Concomitant]
     Dosage: UNK
  6. INSULIN [Concomitant]
     Dosage: UNK

REACTIONS (12)
  - ASTHENIA [None]
  - BACTERIAL INFECTION [None]
  - BLOOD GLUCOSE INCREASED [None]
  - COUGH [None]
  - DECREASED APPETITE [None]
  - DIARRHOEA [None]
  - DYSPNOEA [None]
  - MOUTH ULCERATION [None]
  - OEDEMA PERIPHERAL [None]
  - ORAL PAIN [None]
  - PULMONARY OEDEMA [None]
  - PYREXIA [None]
